APPROVED DRUG PRODUCT: GABAPENTIN
Active Ingredient: GABAPENTIN
Strength: 400MG
Dosage Form/Route: CAPSULE;ORAL
Application: A207099 | Product #003 | TE Code: AB
Applicant: RISING PHARMA HOLDINGS INC
Approved: Mar 24, 2017 | RLD: No | RS: No | Type: RX